FAERS Safety Report 12392514 (Version 25)
Quarter: 2020Q3

REPORT INFORMATION
  Report Type: Report from Study
  Country: BR (occurrence: BR)
  Receive Date: 20160523
  Receipt Date: 20200905
  Transmission Date: 20201102
  Serious: Yes (Other)
  Sender: FDA-Public Use
  Company Number: PHHY2014BR162994

PATIENT
  Age: 60 Year
  Sex: Female
  Weight: 78 kg

DRUGS (14)
  1. SANDOSTATIN LAR DEPOT [Suspect]
     Active Substance: OCTREOTIDE ACETATE
     Indication: ACROMEGALY
     Dosage: 20 MG, QMO
     Route: 030
     Dates: start: 2005
  2. SANDOSTATIN LAR DEPOT [Suspect]
     Active Substance: OCTREOTIDE ACETATE
     Dosage: 20 MG, EVERY 50 DAYS
     Route: 030
     Dates: start: 20190321
  3. SANDOSTATIN LAR DEPOT [Suspect]
     Active Substance: OCTREOTIDE ACETATE
     Dosage: 20 MG, EVERY SIX WEEKS
     Route: 030
     Dates: start: 20170122
  4. SANDOSTATIN LAR DEPOT [Suspect]
     Active Substance: OCTREOTIDE ACETATE
     Dosage: 20 MG, QMO
     Route: 030
     Dates: start: 2005
  5. VASOPRIL [Concomitant]
     Indication: BLOOD PRESSURE INCREASED
     Dosage: 10 MG, QD (ONE TABLET A DAY)
     Route: 048
     Dates: start: 2003
  6. SANDOSTATIN LAR DEPOT [Suspect]
     Active Substance: OCTREOTIDE ACETATE
     Dosage: 20 MG, EVERY 40 DAYS
     Route: 030
     Dates: start: 20181008
  7. SANDOSTATIN LAR DEPOT [Suspect]
     Active Substance: OCTREOTIDE ACETATE
     Dosage: 20 MG, EVERY 40 DAYS
     Route: 030
     Dates: start: 2006
  8. SANDOSTATIN LAR DEPOT [Suspect]
     Active Substance: OCTREOTIDE ACETATE
     Dosage: 20 MG, QMO
     Route: 030
  9. SANDOSTATIN LAR DEPOT [Suspect]
     Active Substance: OCTREOTIDE ACETATE
     Dosage: UNK (EVERY 50 DAYS)
     Route: 030
     Dates: start: 20190703
  10. SANDOSTATIN LAR DEPOT [Suspect]
     Active Substance: OCTREOTIDE ACETATE
     Dosage: 20 MG, EVERY SIX WEEKS
     Route: 030
     Dates: start: 20170405
  11. SANDOSTATIN LAR DEPOT [Suspect]
     Active Substance: OCTREOTIDE ACETATE
     Dosage: UNK (EVERY 50 DAYS)
     Route: 030
     Dates: start: 20190124
  12. SANDOSTATIN LAR DEPOT [Suspect]
     Active Substance: OCTREOTIDE ACETATE
     Dosage: 20 MG, (ONE INJECTION), EVERY 40 DAYS
     Route: 030
     Dates: start: 2015
  13. SANDOSTATIN LAR DEPOT [Suspect]
     Active Substance: OCTREOTIDE ACETATE
     Dosage: 20 MG, EVERY 50 DAYS
     Route: 030
     Dates: start: 20190514
  14. SANDOSTATIN LAR DEPOT [Suspect]
     Active Substance: OCTREOTIDE ACETATE
     Dosage: UNK (EVERY 50 DAYS)
     Route: 030
     Dates: start: 20190821

REACTIONS (45)
  - Fatigue [Not Recovered/Not Resolved]
  - Arthralgia [Not Recovered/Not Resolved]
  - Concomitant disease aggravated [Not Recovered/Not Resolved]
  - Depression [Not Recovered/Not Resolved]
  - Faeces discoloured [Recovering/Resolving]
  - Abnormal faeces [Recovering/Resolving]
  - Headache [Unknown]
  - Depressed mood [Unknown]
  - Fear [Unknown]
  - Thyroid mass [Recovering/Resolving]
  - Chest discomfort [Not Recovered/Not Resolved]
  - Injection site haemorrhage [Unknown]
  - Diabetes mellitus [Not Recovered/Not Resolved]
  - Faeces soft [Recovering/Resolving]
  - Memory impairment [Not Recovered/Not Resolved]
  - Dysstasia [Unknown]
  - Vitamin D decreased [Unknown]
  - Abdominal pain [Recovering/Resolving]
  - Pain in extremity [Not Recovered/Not Resolved]
  - Feeling abnormal [Unknown]
  - Movement disorder [Unknown]
  - Bone pain [Not Recovered/Not Resolved]
  - Helplessness [Unknown]
  - Inappropriate schedule of product administration [Unknown]
  - Insulin-like growth factor decreased [Recovering/Resolving]
  - Blood cholesterol increased [Not Recovered/Not Resolved]
  - Chikungunya virus infection [Recovering/Resolving]
  - Skin discolouration [Not Recovered/Not Resolved]
  - Pain [Not Recovered/Not Resolved]
  - Eye pain [Not Recovered/Not Resolved]
  - Gallbladder disorder [Unknown]
  - Injection site pain [Unknown]
  - Injection site pruritus [Unknown]
  - Injection site injury [Unknown]
  - Needle issue [Unknown]
  - Drug ineffective [Unknown]
  - Cholelithiasis [Not Recovered/Not Resolved]
  - Visual impairment [Not Recovered/Not Resolved]
  - Weight increased [Not Recovered/Not Resolved]
  - Oropharyngeal discomfort [Not Recovered/Not Resolved]
  - Dizziness [Unknown]
  - Peripheral swelling [Unknown]
  - Hypokinesia [Not Recovered/Not Resolved]
  - Injection site mass [Not Recovered/Not Resolved]
  - Wrong technique in product usage process [Unknown]

NARRATIVE: CASE EVENT DATE: 2010
